FAERS Safety Report 7698849-5 (Version None)
Quarter: 2011Q3

REPORT INFORMATION
  Report Type: 
  Country: None (occurrence: None)
  Receive Date: 20110819
  Receipt Date: 20110727
  Transmission Date: 20111222
  Serious: Yes (Hospitalization)
  Sender: FDA-Public Use
  Company Number: US-BAYER-2011-062429

PATIENT
  Sex: Male

DRUGS (5)
  1. NEXAVAR [Suspect]
     Dosage: 200 MG, QD
     Route: 048
     Dates: start: 20110701
  2. NEXAVAR [Suspect]
     Dosage: 200 MG, BID
     Route: 048
     Dates: start: 20110701, end: 20110701
  3. CIPROFLOXACIN HCL [Suspect]
     Dosage: UNK
     Dates: start: 20110814
  4. NEXAVAR [Suspect]
     Indication: ACUTE MYELOID LEUKAEMIA
     Dosage: 400 MG, BID
     Route: 048
     Dates: start: 20110601, end: 20110701
  5. PLATELETS [Concomitant]
     Indication: BLOOD COUNT ABNORMAL
     Dosage: WEEKLY

REACTIONS (8)
  - NEUROPATHY PERIPHERAL [None]
  - BLOOD COUNT ABNORMAL [None]
  - FATIGUE [None]
  - ASTHENIA [None]
  - SEPSIS [None]
  - BONE PAIN [None]
  - BALANCE DISORDER [None]
  - NAUSEA [None]
